FAERS Safety Report 17833081 (Version 1)
Quarter: 2020Q2

REPORT INFORMATION
  Report Type: Spontaneous
  Country: US (occurrence: US)
  Receive Date: 20200528
  Receipt Date: 20200528
  Transmission Date: 20200714
  Serious: No
  Sender: FDA-Public Use
  Company Number: US-UCBSA-2019045389

PATIENT
  Age: 63 Year
  Sex: Female

DRUGS (8)
  1. CIMZIA [Suspect]
     Active Substance: CERTOLIZUMAB PEGOL
     Indication: RHEUMATOID ARTHRITIS
     Dosage: 400 MILLIGRAM, EV 4 WEEKS
     Route: 058
     Dates: start: 20190104, end: 20190121
  2. CORTISONE [Concomitant]
     Active Substance: CORTISONE
     Indication: BURSITIS
     Dosage: TWICE A YEAR
  3. LISINOPRIL + HIDROCLOROTIAZIDA [Concomitant]
     Active Substance: HYDROCHLOROTHIAZIDE\LISINOPRIL
     Indication: PRODUCT USED FOR UNKNOWN INDICATION
     Dosage: 10-12.5 MILLIGRAM, ONCE DAILY (QD)
  4. METHOTREXATE. [Concomitant]
     Active Substance: METHOTREXATE
     Indication: PRODUCT USED FOR UNKNOWN INDICATION
     Dosage: 2.5 MILLIGRAM, 5 TIMES A WEEK
     Route: 048
  5. MEDROL [METHYLPREDNISOLONE ACETATE] [Concomitant]
     Active Substance: METHYLPREDNISOLONE ACETATE
     Indication: PRODUCT USED FOR UNKNOWN INDICATION
     Dosage: 4 MILLIGRAM, AS NEEDED (PRN)
  6. ATORVASTATIN CALCIUM. [Concomitant]
     Active Substance: ATORVASTATIN CALCIUM
     Indication: PRODUCT USED FOR UNKNOWN INDICATION
     Dosage: 20 MILLIGRAM, ONCE DAILY (QD)
  7. FOLIC ACID. [Concomitant]
     Active Substance: FOLIC ACID
     Indication: PRODUCT USED FOR UNKNOWN INDICATION
     Dosage: 1 MILLIGRAM, ONCE DAILY (QD)
     Route: 048
  8. LORAZEPAM. [Concomitant]
     Active Substance: LORAZEPAM
     Indication: PRODUCT USED FOR UNKNOWN INDICATION
     Dosage: 0.5 MILLIGRAM, ONCE DAILY (QD), AS NEEDED

REACTIONS (12)
  - Drug ineffective [Unknown]
  - Arthralgia [Unknown]
  - Dyspnoea [Unknown]
  - Viral infection [Unknown]
  - Musculoskeletal pain [Not Recovered/Not Resolved]
  - Fatigue [Unknown]
  - Nausea [Unknown]
  - Bursitis [Unknown]
  - Sciatica [Unknown]
  - Dizziness [Recovered/Resolved]
  - Joint swelling [Unknown]
  - Drug intolerance [Unknown]

NARRATIVE: CASE EVENT DATE: 2019
